FAERS Safety Report 11293732 (Version 2)
Quarter: 2015Q3

REPORT INFORMATION
  Report Type: Spontaneous
  Country: US (occurrence: US)
  Receive Date: 20150722
  Receipt Date: 20150921
  Transmission Date: 20151125
  Serious: No
  Sender: FDA-Public Use
  Company Number: US-GLAXOSMITHKLINE-US2015GSK104470

PATIENT
  Sex: Female

DRUGS (1)
  1. PROMACTA [Suspect]
     Active Substance: ELTROMBOPAG OLAMINE
     Indication: HENOCH-SCHONLEIN PURPURA
     Dosage: 50 MG, QD
     Route: 048
     Dates: start: 201507

REACTIONS (5)
  - Pain [Unknown]
  - Muscle spasms [Unknown]
  - Diarrhoea [Unknown]
  - Influenza like illness [Unknown]
  - Abdominal distension [Unknown]
